FAERS Safety Report 8327727-3 (Version None)
Quarter: 2012Q2

REPORT INFORMATION
  Report Type: 
  Country: None (occurrence: None)
  Receive Date: 20120502
  Receipt Date: 20120426
  Transmission Date: 20120825
  Serious: No
  Sender: FDA-Public Use
  Company Number: US-PFIZER INC-2012104051

PATIENT
  Sex: Female
  Weight: 106 kg

DRUGS (2)
  1. DEPAKENE [Concomitant]
     Indication: BIPOLAR DISORDER
     Dosage: UNK
  2. IBUPROFEN (ADVIL) [Suspect]
     Indication: BACK PAIN
     Dosage: 400 MG, 6X/DAY
     Route: 048
     Dates: start: 20120401

REACTIONS (2)
  - DRUG INEFFECTIVE [None]
  - BACK PAIN [None]
